FAERS Safety Report 5884822-6 (Version None)
Quarter: 2008Q3

REPORT INFORMATION
  Report Type: 
  Country: None (occurrence: None)
  Receive Date: 20080916
  Receipt Date: 20080908
  Transmission Date: 20090109
  Serious: Yes (Hospitalization, Other)
  Sender: FDA-Public Use
  Company Number: BR-BAYER-200817826LA

PATIENT
  Age: 36 Year
  Sex: Female
  Weight: 68 kg

DRUGS (3)
  1. MIRENA [Suspect]
     Indication: CONTRACEPTION
     Route: 015
     Dates: start: 20050901
  2. FLUOXETINE [Concomitant]
     Indication: WEIGHT CONTROL
     Route: 048
     Dates: start: 20080301
  3. SIBUTRAMINE [Concomitant]
     Indication: WEIGHT CONTROL
     Route: 048
     Dates: start: 20080301

REACTIONS (6)
  - AMENORRHOEA [None]
  - CALCULUS URETERIC [None]
  - IUCD COMPLICATION [None]
  - IUD MIGRATION [None]
  - NEPHROCALCINOSIS [None]
  - NEPHROLITHIASIS [None]
